FAERS Safety Report 4733090-7 (Version None)
Quarter: 2005Q3

REPORT INFORMATION
  Report Type: 
  Country: None (occurrence: None)
  Receive Date: 20050801
  Receipt Date: 20050801
  Transmission Date: 20060218
  Serious: No
  Sender: FDA-Public Use
  Company Number: None

PATIENT
  Age: 82 Year
  Sex: Male
  Weight: 69.7 kg

DRUGS (1)
  1. LINEZOLID 600 MG BID [Suspect]
     Indication: ENTEROCOCCAL INFECTION
     Dosage: 600 MG BID PO
     Route: 048
     Dates: start: 20050517, end: 20050602

REACTIONS (3)
  - CHOLECYSTITIS [None]
  - ENTEROCOCCAL INFECTION [None]
  - HEPARIN-INDUCED THROMBOCYTOPENIA [None]
